FAERS Safety Report 5892811-0 (Version None)
Quarter: 2008Q3

REPORT INFORMATION
  Report Type: 
  Country: None (occurrence: None)
  Receive Date: 20080919
  Receipt Date: 20060502
  Transmission Date: 20090109
  Serious: Yes (Other)
  Sender: FDA-Public Use
  Company Number: 2006-00383FE

PATIENT
  Age: 33 Year
  Sex: Female

DRUGS (7)
  1. DESMOPRESSIN ACETATE [Suspect]
     Indication: ENURESIS
     Dosage: 200 MCG PO
     Route: 048
  2. CLOZARIL (CLOZARIL) (CLOZAPINE) [Suspect]
     Indication: SCHIZOPHRENIA
     Dosage: 550 MG, PO
     Route: 048
     Dates: start: 20020924
  3. DOXAZOSIN MESYLATE [Concomitant]
  4. SALBUTAMOL [Concomitant]
  5. HYOSCINE [Concomitant]
  6. SERTRALINE [Concomitant]
  7. ENTOCORT EC [Concomitant]

REACTIONS (4)
  - BLOOD PRESSURE INCREASED [None]
  - ELECTROCARDIOGRAM ABNORMAL [None]
  - SINUS TACHYCARDIA [None]
  - WEIGHT INCREASED [None]
